FAERS Safety Report 9484176 (Version 2)
Quarter: 2013Q3

REPORT INFORMATION
  Report Type: Spontaneous
  Country: CA (occurrence: CA)
  Receive Date: 20130828
  Receipt Date: 20130828
  Transmission Date: 20140515
  Serious: Yes (Hospitalization, Other)
  Sender: FDA-Public Use
  Company Number: CA-AMGEN-KDL284540

PATIENT
  Age: 47 Year
  Sex: Male
  Weight: 127.1 kg

DRUGS (9)
  1. ENBREL [Suspect]
     Indication: RHEUMATOID ARTHRITIS
     Dosage: UNK UNK, 2 TIMES/WK
     Route: 058
     Dates: start: 20020718
  2. INSULIN RAPID [Concomitant]
     Dosage: UNK UNK, UNK
     Route: 058
  3. INSULIN [Concomitant]
     Dosage: UNK UNK, UNK
     Route: 058
  4. FLUOXETINE [Concomitant]
  5. ATORVASTATIN CALCIUM [Concomitant]
  6. CLOPIDOGREL BISULFATE [Concomitant]
  7. LOSARTAN POTASSIUM [Concomitant]
  8. METOPROLOL [Concomitant]
  9. RANITIDINE [Concomitant]

REACTIONS (7)
  - Rectal haemorrhage [Unknown]
  - Rheumatoid arthritis [Unknown]
  - Myocardial infarction [Unknown]
  - Gastroenteritis norovirus [Unknown]
  - Fall [Unknown]
  - Skin haemorrhage [Unknown]
  - Gastric infection [Unknown]
